FAERS Safety Report 6030769-4 (Version None)
Quarter: 2009Q1

REPORT INFORMATION
  Report Type: 
  Country: None (occurrence: None)
  Receive Date: 20090107
  Receipt Date: 20081229
  Transmission Date: 20090719
  Serious: Yes (Other)
  Sender: FDA-Public Use
  Company Number: US-PFIZER INC-2007021805

PATIENT
  Sex: Male
  Weight: 86.2 kg

DRUGS (7)
  1. VIAGRA [Suspect]
     Indication: ERECTILE DYSFUNCTION
     Dates: start: 20060101
  2. DETROL LA [Suspect]
     Indication: POLLAKIURIA
  3. TAMSULOSIN HCL [Suspect]
     Indication: PROSTATOMEGALY
  4. ZOLOFT [Concomitant]
  5. LIPITOR [Concomitant]
  6. VERAPAMIL HCL [Concomitant]
  7. LISINOPRIL [Concomitant]

REACTIONS (7)
  - DRUG EFFECT DECREASED [None]
  - DRUG INEFFECTIVE [None]
  - ERECTILE DYSFUNCTION [None]
  - LOSS OF LIBIDO [None]
  - NEOPLASM MALIGNANT [None]
  - POLLAKIURIA [None]
  - PROSTATECTOMY [None]
